FAERS Safety Report 5514247-4 (Version None)
Quarter: 2007Q4

REPORT INFORMATION
  Report Type: 
  Country: None (occurrence: None)
  Receive Date: 20071031
  Receipt Date: 20070517
  Transmission Date: 20080405
  Serious: Yes (Other)
  Sender: FDA-Public Use
  Company Number: US020138

PATIENT
  Sex: Female
  Weight: 93.441 kg

DRUGS (7)
  1. PROVIGIL [Suspect]
     Indication: HYPERSOMNIA
     Dosage: 200 MG QAM ORAL
     Route: 048
     Dates: start: 20070511, end: 20070518
  2. METAGLIP [Concomitant]
  3. IMURAN /00001501/ [Concomitant]
  4. PREDNISONE [Concomitant]
  5. RESTORIL /00393701/ [Concomitant]
  6. PREVACID [Concomitant]
  7. DIOVAN /01319601/ [Concomitant]

REACTIONS (4)
  - CHEST DISCOMFORT [None]
  - COUGH [None]
  - DYSPNOEA [None]
  - WHEEZING [None]
